FAERS Safety Report 7985685-5 (Version None)
Quarter: 2011Q4

REPORT INFORMATION
  Report Type: 
  Country: None (occurrence: None)
  Receive Date: 20111216
  Receipt Date: 20111212
  Transmission Date: 20120403
  Serious: Yes (Hospitalization, Other)
  Sender: FDA-Public Use
  Company Number: BR-ABBOTT-11P-020-0708459-00

PATIENT
  Sex: Female
  Weight: 53 kg

DRUGS (21)
  1. VONAU [Concomitant]
     Indication: PROPHYLAXIS OF NAUSEA AND VOMITING
     Route: 060
  2. CLONAZEPAM [Concomitant]
     Indication: SLEEP DISORDER THERAPY
     Route: 048
  3. NORIPURUM [Concomitant]
     Indication: ANAEMIA
     Route: 048
  4. LUFTAL [Concomitant]
     Indication: PROPHYLAXIS
     Route: 048
  5. CLONAZEPAM [Concomitant]
     Indication: SLEEP DISORDER THERAPY
     Route: 048
  6. OBANSATROMA [Concomitant]
     Indication: VOMITING
     Route: 048
  7. CAPTOPRIL [Concomitant]
     Indication: HYPERTENSION
     Route: 048
  8. GABAPENTIN [Concomitant]
     Indication: NEUROLOGICAL SYMPTOM
  9. SYNTHROID [Suspect]
     Indication: HORMONE REPLACEMENT THERAPY
     Route: 048
  10. GABAPENTIN [Concomitant]
     Indication: CONVULSION PROPHYLAXIS
     Route: 048
  11. CLONAZEPAM [Concomitant]
     Indication: MUSCLE RELAXANT THERAPY
  12. NOVALGINA [Concomitant]
     Indication: VOMITING
  13. FLUOXETINE [Concomitant]
     Indication: AFFECTIVE DISORDER
     Route: 048
  14. SPIRONOLACTONE [Concomitant]
     Indication: DIURETIC THERAPY
     Route: 048
  15. SYNTHROID [Suspect]
  16. NOVALGINA [Concomitant]
     Indication: PAIN
     Route: 048
  17. ASPIRIN [Concomitant]
     Indication: ANTICOAGULANT THERAPY
     Route: 048
  18. LUFTAL [Concomitant]
     Indication: FLATULENCE
  19. SIMVASTATIN [Concomitant]
     Indication: PROPHYLAXIS
     Route: 048
  20. METOPROLOL SUCCINATE [Concomitant]
     Indication: ARRHYTHMIA
     Route: 048
  21. SIMVASTATIN [Concomitant]
     Indication: BLOOD CHOLESTEROL ABNORMAL

REACTIONS (10)
  - FEMORAL ARTERY ANEURYSM [None]
  - MYOCARDIAL INFARCTION [None]
  - RENAL FAILURE [None]
  - VASCULAR PSEUDOANEURYSM [None]
  - PERIPHERAL ARTERY ANEURYSM [None]
  - BLOOD THYROID STIMULATING HORMONE ABNORMAL [None]
  - AORTIC ANEURYSM [None]
  - DRUG INEFFECTIVE [None]
  - CEREBROVASCULAR ACCIDENT [None]
  - ABDOMINAL PAIN UPPER [None]
